FAERS Safety Report 11951358 (Version 4)
Quarter: 2016Q3

REPORT INFORMATION
  Report Type: Report from Study
  Country: JP (occurrence: JP)
  Receive Date: 20160125
  Receipt Date: 20160706
  Transmission Date: 20161109
  Serious: Yes (Hospitalization)
  Sender: FDA-Public Use
  Company Number: JP-ABBVIE-16P-087-1544927-00

PATIENT
  Age: 7 Year
  Sex: Female

DRUGS (32)
  1. LACTULOSE. [Concomitant]
     Active Substance: LACTULOSE
     Route: 048
     Dates: start: 20130511
  2. FERRIC OXIDE, SACCHARATED [Concomitant]
     Indication: CYSTIC FIBROSIS PANCREATIC
     Route: 050
     Dates: start: 20140402, end: 20140402
  3. AMPICILLIN SODIUM W/SULBACTAM SODIUM [Concomitant]
     Active Substance: AMPICILLIN SODIUM\SULBACTAM SODIUM
     Indication: CYSTIC FIBROSIS PANCREATIC
     Route: 050
     Dates: start: 20130724, end: 20130729
  4. AMPICILLIN SODIUM W/SULBACTAM SODIUM [Concomitant]
     Active Substance: AMPICILLIN SODIUM\SULBACTAM SODIUM
     Route: 050
     Dates: start: 20131113, end: 20131119
  5. AMBROXOL HYDROCHLORIDE [Concomitant]
     Active Substance: AMBROXOL HYDROCHLORIDE
     Indication: PNEUMONIA
     Route: 048
     Dates: start: 20130227, end: 20130304
  6. CEFAZOLIN [Concomitant]
     Active Substance: CEFAZOLIN
     Indication: CYSTIC FIBROSIS PANCREATIC
     Route: 050
     Dates: start: 20140129, end: 20140131
  7. CEFOTAXIME SODIUM [Concomitant]
     Active Substance: CEFOTAXIME SODIUM
     Route: 050
     Dates: start: 20140727, end: 20140731
  8. LIPACREON GRANULES 300MG SACHET [Suspect]
     Active Substance: PANCRELIPASE
     Indication: PANCREATIC INSUFFICIENCY
     Route: 048
     Dates: start: 20130415, end: 20130524
  9. TOBRAMYCIN. [Concomitant]
     Active Substance: TOBRAMYCIN
     Indication: PNEUMONIA
     Route: 055
     Dates: start: 20130513, end: 20130610
  10. CEFAZOLIN [Concomitant]
     Active Substance: CEFAZOLIN
     Indication: PYREXIA
     Route: 050
     Dates: start: 20140502, end: 20140508
  11. CEFAZOLIN [Concomitant]
     Active Substance: CEFAZOLIN
     Route: 050
     Dates: start: 20140616, end: 20140622
  12. CEFAZOLIN [Concomitant]
     Active Substance: CEFAZOLIN
     Route: 050
     Dates: start: 20140823, end: 20140830
  13. CEFOTAXIME SODIUM [Concomitant]
     Active Substance: CEFOTAXIME SODIUM
     Indication: CYSTIC FIBROSIS PANCREATIC
     Route: 050
     Dates: start: 20140217, end: 20140227
  14. LIPACREON [Suspect]
     Active Substance: PANCRELIPASE
     Indication: PANCREATIC INSUFFICIENCY
     Dosage: DECAPSULATION; DAILY DOSE:630MG
     Route: 048
     Dates: start: 20120820, end: 20130414
  15. TULOBUTEROL [Concomitant]
     Active Substance: TULOBUTEROL
     Indication: PNEUMONIA
     Route: 048
     Dates: start: 20130227, end: 20130304
  16. CARBOCISTEINE [Concomitant]
     Active Substance: CARBOCYSTEINE
     Indication: PNEUMONIA
     Route: 048
     Dates: start: 20130227, end: 20130304
  17. AMPICILLIN SODIUM W/SULBACTAM SODIUM [Concomitant]
     Active Substance: AMPICILLIN SODIUM\SULBACTAM SODIUM
     Route: 050
     Dates: start: 20131203, end: 20131210
  18. LIPACREON GRANULES 300MG SACHET [Suspect]
     Active Substance: PANCRELIPASE
     Route: 048
     Dates: start: 20130525
  19. INTAL [Concomitant]
     Active Substance: CROMOLYN SODIUM
     Indication: PNEUMONIA
     Route: 055
     Dates: start: 20130227, end: 20130304
  20. RASENAZOLIN [Concomitant]
     Active Substance: CEFAZOLIN SODIUM
     Route: 050
     Dates: start: 20140123, end: 20140128
  21. CEFAZOLIN [Concomitant]
     Active Substance: CEFAZOLIN
     Route: 050
     Dates: start: 20140522, end: 20140529
  22. CEFAZOLIN [Concomitant]
     Active Substance: CEFAZOLIN
     Route: 050
     Dates: start: 20140801, end: 20140805
  23. CEFOTAXIME SODIUM [Concomitant]
     Active Substance: CEFOTAXIME SODIUM
     Route: 050
     Dates: start: 20140327, end: 20140402
  24. LACTULOSE. [Concomitant]
     Active Substance: LACTULOSE
     Indication: PNEUMONIA
     Route: 048
     Dates: start: 20130507, end: 20130510
  25. FERRIC OXIDE, SACCHARATED [Concomitant]
     Route: 050
     Dates: start: 20140410, end: 20140411
  26. RASENAZOLIN [Concomitant]
     Active Substance: CEFAZOLIN SODIUM
     Indication: CYSTIC FIBROSIS PANCREATIC
     Route: 050
     Dates: start: 20131219, end: 20131226
  27. AMPICILLIN SODIUM W/CLOXACILLIN SODIUM [Concomitant]
     Indication: PNEUMONIA
     Route: 050
     Dates: start: 20130227, end: 20130304
  28. PROCATEROL HYDROCHLORIDE [Concomitant]
     Active Substance: PROCATEROL HYDROCHLORIDE
     Indication: PNEUMONIA
     Route: 055
     Dates: start: 20130227, end: 20130304
  29. LANSOPRAZOLE. [Concomitant]
     Active Substance: LANSOPRAZOLE
     Indication: PNEUMONIA
     Route: 048
     Dates: start: 20130517
  30. AMPICILLIN SODIUM W/SULBACTAM SODIUM [Concomitant]
     Active Substance: AMPICILLIN SODIUM\SULBACTAM SODIUM
     Route: 050
     Dates: start: 20130909, end: 20130911
  31. PIPERACILLIN SODIUM [Concomitant]
     Active Substance: PIPERACILLIN SODIUM
     Indication: CYSTIC FIBROSIS PANCREATIC
     Route: 050
     Dates: start: 20140117, end: 20140122
  32. CEFOTAXIME SODIUM [Concomitant]
     Active Substance: CEFOTAXIME SODIUM
     Route: 050
     Dates: start: 20140409, end: 20140418

REACTIONS (1)
  - Erythema multiforme [Recovered/Resolved]

NARRATIVE: CASE EVENT DATE: 20140428
